FAERS Safety Report 14920832 (Version 1)
Quarter: 2018Q2

REPORT INFORMATION
  Report Type: Report from Study
  Country: None (occurrence: AR)
  Receive Date: 20180521
  Receipt Date: 20180521
  Transmission Date: 20180711
  Serious: Yes (Hospitalization)
  Sender: FDA-Public Use
  Company Number: AR-B. BRAUN MEDICAL INC.-2048179

PATIENT
  Age: 67 Year
  Sex: Male

DRUGS (2)
  1. METRONIDAZOLE INJECTION USP (5 MG/ML) IN PAB? PLASTIC CONTAINER [Suspect]
     Active Substance: METRONIDAZOLE
     Route: 042
  2. FLUCONAZOLE. [Concomitant]
     Active Substance: FLUCONAZOLE

REACTIONS (1)
  - Candida infection [None]
